FAERS Safety Report 5741963-1 (Version None)
Quarter: 2008Q2

REPORT INFORMATION
  Report Type: 
  Country: None (occurrence: None)
  Receive Date: 20080519
  Receipt Date: 20080509
  Transmission Date: 20081010
  Serious: Yes (Hospitalization, Other)
  Sender: FDA-Public Use
  Company Number: US-ELI_LILLY_AND_COMPANY-US200803002963

PATIENT
  Sex: Male
  Weight: 136.5 kg

DRUGS (2)
  1. ZYPREXA [Suspect]
     Indication: SCHIZOPHRENIA
     Dosage: 30 MG, UNK
     Dates: start: 20000101
  2. PAXIL [Concomitant]
     Dates: start: 20000101

REACTIONS (10)
  - BLOOD CHOLESTEROL ABNORMAL [None]
  - BLOOD TRIGLYCERIDES INCREASED [None]
  - CATARACT [None]
  - DIABETES MELLITUS [None]
  - EYE DISORDER [None]
  - FALL [None]
  - HIP FRACTURE [None]
  - HYPERTENSION [None]
  - OBESITY [None]
  - OVERDOSE [None]
